FAERS Safety Report 21770748 (Version 1)
Quarter: 2022Q4

REPORT INFORMATION
  Report Type: Other
  Country: None (occurrence: US)
  Receive Date: 20221223
  Receipt Date: 20221223
  Transmission Date: 20230112
  Serious: Yes (Other)
  Sender: FDA-Public Use
  Company Number: US-Eywa Pharma Inc.-2136123

PATIENT
  Age: 44 Year
  Sex: Female

DRUGS (4)
  1. LABETALOL HYDROCHLORIDE [Suspect]
     Active Substance: LABETALOL HYDROCHLORIDE
     Indication: Product used for unknown indication
     Route: 065
  2. MAGNESIUM [Suspect]
     Active Substance: MAGNESIUM
     Route: 042
  3. KETOROLAC [Suspect]
     Active Substance: KETOROLAC TROMETHAMINE
     Route: 065
  4. HEPARIN [Suspect]
     Active Substance: HEPARIN SODIUM
     Route: 065

REACTIONS (2)
  - Hyperkalaemia [Recovering/Resolving]
  - Maternal exposure during pregnancy [Unknown]
